FAERS Safety Report 5684571-3 (Version None)
Quarter: 2008Q1

REPORT INFORMATION
  Report Type: 
  Country: None (occurrence: None)
  Receive Date: 20080328
  Receipt Date: 20070228
  Transmission Date: 20080703
  Serious: No
  Sender: FDA-Public Use
  Company Number: US-BRISTOL-MYERS SQUIBB COMPANY-13695721

PATIENT
  Sex: Female

DRUGS (4)
  1. ERBITUX [Suspect]
     Indication: COLON CANCER METASTATIC
  2. BENADRYL [Concomitant]
     Indication: PREMEDICATION
  3. ZANTAC [Concomitant]
     Indication: PREMEDICATION
  4. IRINOTECAN HCL [Concomitant]

REACTIONS (2)
  - ERYTHEMA [None]
  - OCULAR HYPERAEMIA [None]
